FAERS Safety Report 5109002-3 (Version None)
Quarter: 2006Q3

REPORT INFORMATION
  Report Type: 
  Country: None (occurrence: None)
  Receive Date: 20060918
  Receipt Date: 20060831
  Transmission Date: 20061208
  Serious: Yes (Other)
  Sender: FDA-Public Use
  Company Number: US200609000206

PATIENT
  Age: 72 Year
  Sex: Female

DRUGS (8)
  1. FORTEO [Suspect]
     Indication: OSTEOPOROSIS
     Dates: start: 20050814
  2. FORTEO PEN (FORTEO PEN) [Concomitant]
  3. METHOTREXATE [Concomitant]
  4. PREDNISONE TAB [Concomitant]
  5. ALLOPURINOL [Concomitant]
  6. CALCIUM W/VITAMIN D NOS (CALCIUM, VITAMIN D NOS) [Concomitant]
  7. POTASSIUM (POTASSIUM) [Concomitant]
  8. DEMADEX [Concomitant]

REACTIONS (7)
  - ERYTHEMA [None]
  - GAIT DISTURBANCE [None]
  - GOUT [None]
  - LUNG CARCINOMA CELL TYPE UNSPECIFIED STAGE II [None]
  - NAUSEA [None]
  - PHARMACEUTICAL PRODUCT COMPLAINT [None]
  - WEIGHT DECREASED [None]
